FAERS Safety Report 10192737 (Version 1)
Quarter: 2014Q2

REPORT INFORMATION
  Report Type: Spontaneous
  Country: US (occurrence: US)
  Receive Date: 20140523
  Receipt Date: 20140523
  Transmission Date: 20141212
  Serious: Yes (Death, Hospitalization)
  Sender: FDA-Public Use
  Company Number: US-ACTELION-A-NJ2014-99194

PATIENT
  Age: 63 Year
  Sex: Female

DRUGS (1)
  1. VELETRI [Suspect]
     Indication: COR PULMONALE CHRONIC
     Dosage: UNK
     Route: 042
     Dates: start: 20101228

REACTIONS (2)
  - Death [Fatal]
  - Dyspnoea [Unknown]
